FAERS Safety Report 7082060-5 (Version None)
Quarter: 2010Q4

REPORT INFORMATION
  Report Type: 
  Country: None (occurrence: None)
  Receive Date: 20101103
  Receipt Date: 20101101
  Transmission Date: 20110411
  Serious: No
  Sender: FDA-Public Use
  Company Number: US-PFIZER INC-001-0981-M0009413

PATIENT
  Sex: Female
  Weight: 58.97 kg

DRUGS (4)
  1. LIPITOR [Suspect]
     Indication: BLOOD CHOLESTEROL ABNORMAL
     Dosage: 10MG, DAILY
     Route: 065
  2. PROPANOLOL HCL [Concomitant]
     Dosage: UNK
     Route: 065
  3. ROFECOXIB [Concomitant]
     Dosage: UNK
     Route: 065
  4. VITAMINS [Concomitant]
     Dosage: UNK
     Route: 065

REACTIONS (3)
  - ABDOMINAL PAIN [None]
  - ABDOMINAL PAIN LOWER [None]
  - FLATULENCE [None]
